FAERS Safety Report 7086228-3 (Version None)
Quarter: 2010Q4

REPORT INFORMATION
  Report Type: 
  Country: None (occurrence: None)
  Receive Date: 20101105
  Receipt Date: 20101028
  Transmission Date: 20110411
  Serious: Yes (Hospitalization)
  Sender: FDA-Public Use
  Company Number: US-AMGEN-USASP2010001812

PATIENT

DRUGS (3)
  1. ENBREL [Suspect]
     Indication: RHEUMATOID ARTHRITIS
     Dosage: 25 MG, 2 TIMES/WK
     Route: 058
     Dates: start: 20090916
  2. ENBREL [Suspect]
     Dosage: UNSPECIFIED
  3. SULFASALAZINE [Concomitant]

REACTIONS (8)
  - BRONCHITIS [None]
  - CELLULITIS [None]
  - CYST [None]
  - ORAL FUNGAL INFECTION [None]
  - RASH PUSTULAR [None]
  - RHEUMATOID ARTHRITIS [None]
  - URINARY TRACT INFECTION [None]
  - WHITE BLOOD CELL COUNT INCREASED [None]
